FAERS Safety Report 7454036-7 (Version None)
Quarter: 2011Q2

REPORT INFORMATION
  Report Type: 
  Country: None (occurrence: None)
  Receive Date: 20110502
  Receipt Date: 20090812
  Transmission Date: 20111010
  Serious: Yes (Hospitalization, Other)
  Sender: FDA-Public Use
  Company Number: DE-GENENTECH-317807

PATIENT
  Age: 87 Year
  Sex: Male

DRUGS (2)
  1. LUCENTIS [Suspect]
     Indication: AGE-RELATED MACULAR DEGENERATION
     Dosage: UNK
     Route: 031
     Dates: start: 20090331
  2. UNSPECIFIED MEDICATION [Concomitant]
     Indication: PRODUCT USED FOR UNKNOWN INDICATION

REACTIONS (7)
  - ARRHYTHMIA [None]
  - VISUAL IMPAIRMENT [None]
  - RETINAL SCAR [None]
  - ATRIAL FIBRILLATION [None]
  - EYE HAEMORRHAGE [None]
  - DRY EYE [None]
  - BLOOD PRESSURE INCREASED [None]
